FAERS Safety Report 21659309 (Version 1)
Quarter: 2022Q4

REPORT INFORMATION
  Report Type: Spontaneous
  Country: US (occurrence: US)
  Receive Date: 20221129
  Receipt Date: 20221129
  Transmission Date: 20230112
  Serious: No
  Sender: FDA-Public Use
  Company Number: US-BAUSCH-BL-2022-026072

PATIENT
  Age: 66 Year
  Sex: Male
  Weight: 68.100 kg

DRUGS (1)
  1. IPRATROPIUM BROMIDE [Suspect]
     Active Substance: IPRATROPIUM BROMIDE
     Indication: Upper-airway cough syndrome
     Route: 045
     Dates: start: 20221122, end: 20221123

REACTIONS (1)
  - Epistaxis [Unknown]
